FAERS Safety Report 18301053 (Version 1)
Quarter: 2020Q3

REPORT INFORMATION
  Report Type: Report from Study
  Country: GR (occurrence: GR)
  Receive Date: 20200923
  Receipt Date: 20200923
  Transmission Date: 20201103
  Serious: Yes (Other)
  Sender: FDA-Public Use
  Company Number: GR-ASTELLAS-2020US033097

PATIENT

DRUGS (1)
  1. ADENOSINE. [Suspect]
     Active Substance: ADENOSINE
     Indication: SCAN MYOCARDIAL PERFUSION
     Dosage: 140 ?G/KG/MIN, UNKNOWN FREQ. (USING AN ACCURATE INFUSION PUMP OVER 6 MINUTES)
     Route: 065

REACTIONS (1)
  - Pulmonary oedema [Unknown]
